FAERS Safety Report 6111515-2 (Version None)
Quarter: 2009Q1

REPORT INFORMATION
  Report Type: 
  Country: None (occurrence: None)
  Receive Date: 20090309
  Receipt Date: 20090224
  Transmission Date: 20090719
  Serious: Yes (Death)
  Sender: FDA-Public Use
  Company Number: ES-2009-0397

PATIENT
  Age: 68 Year
  Sex: Female

DRUGS (1)
  1. NAVELBINE [Suspect]
     Indication: BREAST CANCER
     Dates: start: 20080207, end: 20080313

REACTIONS (1)
  - PANCREATITIS ACUTE [None]
